FAERS Safety Report 4303173-4 (Version None)
Quarter: 2004Q1

REPORT INFORMATION
  Report Type: 
  Country: None (occurrence: None)
  Receive Date: 20040224
  Receipt Date: 20040204
  Transmission Date: 20041129
  Serious: Yes (Life-Threatening, Hospitalization)
  Sender: FDA-Public Use
  Company Number: PHHO2004CA02053

PATIENT
  Age: 60 Year
  Sex: Male
  Weight: 61 kg

DRUGS (5)
  1. VALSARTAN [Suspect]
     Indication: HYPERTENSION
     Dosage: DOUBLE-BLIND
     Dates: start: 20031103, end: 20040104
  2. VALSARTAN [Suspect]
     Dosage: OFF STUDY MEDICATION
     Dates: start: 20040104
  3. HYDROCHLOROTHIAZIDE [Suspect]
     Dosage: 12 MG, QD
     Route: 048
     Dates: start: 20040126, end: 20040129
  4. HYDROCHLOROTHIAZIDE [Suspect]
     Dosage: 25 MG, QD
     Route: 048
     Dates: start: 20040130, end: 20040204
  5. ASPIRIN [Concomitant]
     Indication: PROPHYLAXIS

REACTIONS (3)
  - BLOOD CHLORIDE DECREASED [None]
  - BLOOD SODIUM DECREASED [None]
  - GRAND MAL CONVULSION [None]
